FAERS Safety Report 24005924 (Version 1)
Quarter: 2024Q2

REPORT INFORMATION
  Report Type: Spontaneous
  Country: CA (occurrence: CA)
  Receive Date: 20240624
  Receipt Date: 20240624
  Transmission Date: 20240716
  Serious: Yes (Death, Hospitalization, Other)
  Sender: FDA-Public Use
  Company Number: CA-MYLANLABS-2024M1054824

PATIENT
  Age: 37 Year
  Sex: Male

DRUGS (8)
  1. CLOZAPINE [Interacting]
     Active Substance: CLOZAPINE
     Indication: Schizophrenia
     Dosage: 100 MILLIGRAM, QD (1 EVERY 24 HOURS)
     Route: 065
  2. CLOZAPINE [Interacting]
     Active Substance: CLOZAPINE
     Indication: Obsessive-compulsive disorder
  3. FLUVOXAMINE [Interacting]
     Active Substance: FLUVOXAMINE
     Indication: Schizophrenia
     Dosage: 300 MILLIGRAM, QD (1 EVERY 24 HOURS)
     Route: 065
  4. FLUVOXAMINE [Interacting]
     Active Substance: FLUVOXAMINE
     Indication: Obsessive-compulsive disorder
  5. FLUVOXAMINE [Interacting]
     Active Substance: FLUVOXAMINE
     Indication: Schizophrenia
     Dosage: 50 MILLIGRAM
     Route: 065
  6. FLUVOXAMINE [Interacting]
     Active Substance: FLUVOXAMINE
     Indication: Obsessive-compulsive disorder
  7. CLOMIPRAMINE [Interacting]
     Active Substance: CLOMIPRAMINE
     Indication: Schizophrenia
     Dosage: 100 MILLIGRAM, QD (1 EVERY 24 HOURS)
     Route: 065
  8. CLOMIPRAMINE [Interacting]
     Active Substance: CLOMIPRAMINE
     Indication: Obsessive-compulsive disorder

REACTIONS (5)
  - Deep vein thrombosis [Fatal]
  - Psychiatric decompensation [Fatal]
  - Pulmonary embolism [Fatal]
  - Drug interaction [Fatal]
  - Product availability issue [Fatal]
